FAERS Safety Report 9301427 (Version 1)
Quarter: 2013Q3

REPORT INFORMATION
  Report Type: Spontaneous
  Country: US (occurrence: None)
  Receive Date: 20130520
  Receipt Date: 20130520
  Transmission Date: 20140515
  Serious: Yes (Hospitalization)
  Sender: FDA-Public Use
  Company Number: None

PATIENT
  Age: 43 Year
  Sex: Female
  Weight: 77 kg

DRUGS (4)
  1. NULOJIX [Suspect]
     Indication: RENAL TRANSPLANT
     Dosage: 787.5 MG Q 4 WEEKS IV
     Route: 042
  2. CELLCEPT (MYCOPHENOLATE MOFETIL) [Suspect]
     Indication: RENAL TRANSPLANT
     Route: 048
  3. ALEMTUZUMAB [Concomitant]
  4. PREDNISONE [Concomitant]

REACTIONS (4)
  - Abdominal pain [None]
  - Incisional drainage [None]
  - Purulence [None]
  - Wound infection staphylococcal [None]
